FAERS Safety Report 24377879 (Version 1)
Quarter: 2024Q3

REPORT INFORMATION
  Report Type: Other
  Country: US (occurrence: US)
  Receive Date: 20240930
  Receipt Date: 20240930
  Transmission Date: 20241017
  Serious: Yes (Death, Hospitalization)
  Sender: SERVIER
  Company Number: US-SERVIER-S24012277

PATIENT

DRUGS (12)
  1. ONCASPAR [Suspect]
     Active Substance: PEGASPARGASE
     Indication: Acute biphenotypic leukaemia
     Dosage: UNK
     Route: 065
  2. DEXAMETHASONE [Suspect]
     Active Substance: DEXAMETHASONE
     Indication: Acute biphenotypic leukaemia
     Dosage: UNK
     Route: 065
  3. DEXAMETHASONE [Suspect]
     Active Substance: DEXAMETHASONE
     Indication: Haemophagocytic lymphohistiocytosis
  4. DAUNORUBICIN [Suspect]
     Active Substance: DAUNORUBICIN
     Indication: Acute biphenotypic leukaemia
     Dosage: UNK
     Route: 065
  5. VINCRISTINE [Suspect]
     Active Substance: VINCRISTINE
     Indication: Acute biphenotypic leukaemia
     Dosage: UNK
     Route: 065
  6. CYCLOPHOSPHAMIDE [Suspect]
     Active Substance: CYCLOPHOSPHAMIDE
     Indication: Prophylaxis against graft versus host disease
     Dosage: UNK
     Route: 065
  7. CYCLOPHOSPHAMIDE [Suspect]
     Active Substance: CYCLOPHOSPHAMIDE
     Indication: Immunosuppression
  8. ALEMTUZUMAB [Suspect]
     Active Substance: ALEMTUZUMAB
     Indication: Immunosuppression
     Dosage: UNK
     Route: 065
  9. FLUDARABINE [Suspect]
     Active Substance: FLUDARABINE PHOSPHATE
     Indication: Immunosuppression
     Dosage: UNK
     Route: 065
  10. CYCLOSPORINE [Suspect]
     Active Substance: CYCLOSPORINE
     Indication: Prophylaxis against graft versus host disease
     Dosage: UNK
     Route: 065
  11. MYCOPHENOLATE MOFETIL [Suspect]
     Active Substance: MYCOPHENOLATE MOFETIL
     Indication: Prophylaxis against graft versus host disease
     Dosage: UNK
     Route: 065
  12. ABATACEPT [Suspect]
     Active Substance: ABATACEPT
     Indication: Prophylaxis against graft versus host disease
     Dosage: UNK
     Route: 065

REACTIONS (21)
  - Septic shock [Fatal]
  - Disseminated intravascular coagulation [Fatal]
  - Haemophagocytic lymphohistiocytosis [Unknown]
  - Haematemesis [Unknown]
  - Colitis [Recovered/Resolved]
  - Hypertransaminasaemia [Unknown]
  - Pyrexia [Unknown]
  - Cardiopulmonary failure [Unknown]
  - Bone marrow failure [Unknown]
  - Streptococcal bacteraemia [Unknown]
  - Colitis [Unknown]
  - Pericardial effusion [Unknown]
  - Weight decreased [Unknown]
  - Abdominal pain [Unknown]
  - Respiratory distress [Unknown]
  - Pneumonia acinetobacter [Unknown]
  - Thrombotic microangiopathy [Unknown]
  - Pneumomediastinum [Unknown]
  - Pneumothorax [Unknown]
  - Cardiac dysfunction [Unknown]
  - Multiple organ dysfunction syndrome [Unknown]
